FAERS Safety Report 17558465 (Version 2)
Quarter: 2020Q1

REPORT INFORMATION
  Report Type: Report from Study
  Country: GR (occurrence: GR)
  Receive Date: 20200318
  Receipt Date: 20200320
  Transmission Date: 20200409
  Serious: Yes (Other)
  Sender: FDA-Public Use
  Company Number: GR-BAUSCH-BL-2020-008479

PATIENT
  Age: 39 Year
  Sex: Female

DRUGS (1)
  1. KYNTHEUM [Suspect]
     Active Substance: BRODALUMAB
     Indication: PSORIASIS
     Dosage: 210 MG IN WEEKS 0,1, 2 AND THEN EVERY TWO WEEKS
     Route: 058
     Dates: start: 20200214, end: 20200228

REACTIONS (1)
  - Anaphylactic shock [Unknown]
